FAERS Safety Report 8619320-X (Version None)
Quarter: 2012Q3

REPORT INFORMATION
  Report Type: 
  Country: None (occurrence: None)
  Receive Date: 20120810
  Receipt Date: 20120802
  Transmission Date: 20120928
  Serious: Yes (Hospitalization)
  Sender: FDA-Public Use
  Company Number: 2012HGS-003721

PATIENT
  Age: 40 Year
  Sex: Female
  Weight: 145.151 kg

DRUGS (24)
  1. PRAVASTATIN [Concomitant]
  2. COMPAZINE [Concomitant]
  3. MS CONTIN [Concomitant]
  4. PLAVIX [Concomitant]
  5. ALDACTONE [Concomitant]
  6. ZOFRAN [Concomitant]
  7. CELLCEPT [Concomitant]
  8. ASCORBIC ACID [Concomitant]
  9. PLAQUENIL [Concomitant]
  10. RANITIDINE (PREDNISONE) [Concomitant]
  11. CALCIUM [Concomitant]
  12. BENLYSTA [Suspect]
     Indication: SYSTEMIC LUPUS ERYTHEMATOSUS
     Dosage: 1 IN 1 28 D, INTRVENOUS DRIP
     Route: 041
     Dates: start: 20120517
  13. BENLYSTA [Suspect]
     Indication: SYSTEMIC LUPUS ERYTHEMATOSUS
     Dosage: 1 IN 1 28 D, INTRVENOUS DRIP
     Route: 041
     Dates: start: 20120419
  14. BENLYSTA [Suspect]
     Indication: SYSTEMIC LUPUS ERYTHEMATOSUS
     Dosage: 1 IN 1 28 D, INTRVENOUS DRIP
     Route: 041
     Dates: start: 20120503
  15. PROPRANOLOL [Concomitant]
  16. RECLAST [Concomitant]
  17. BACLOFEN [Concomitant]
  18. ACIPHEX [Concomitant]
  19. GABAPENTIN [Concomitant]
  20. METFORMIN HYDROCHLORIDE [Concomitant]
  21. PREDNISOLONE (PREDNISONE) [Concomitant]
  22. DULCOLAX [Concomitant]
  23. DEPO-PROVERA [Concomitant]
  24. FENTORA [Concomitant]

REACTIONS (8)
  - WEIGHT DECREASED [None]
  - DEHYDRATION [None]
  - HYPERHIDROSIS [None]
  - CHILLS [None]
  - STOMATITIS [None]
  - DIARRHOEA [None]
  - PYREXIA [None]
  - DECREASED APPETITE [None]
